FAERS Safety Report 8312423-9 (Version None)
Quarter: 2012Q2

REPORT INFORMATION
  Report Type: 
  Country: None (occurrence: None)
  Receive Date: 20120425
  Receipt Date: 20120418
  Transmission Date: 20120825
  Serious: Yes (Hospitalization)
  Sender: FDA-Public Use
  Company Number: SE-ALLERGAN-1204675US

PATIENT
  Age: 90 Year
  Sex: Female

DRUGS (6)
  1. FUROSEMIDE [Concomitant]
  2. ATACAND [Concomitant]
  3. BOTOX 200 ALLERGAN [Suspect]
     Indication: PRODUCT USED FOR UNKNOWN INDICATION
     Dosage: UNK
     Dates: start: 20120224, end: 20120224
  4. ASPIRIN [Concomitant]
  5. AMILORID [Concomitant]
  6. METOPROLOL TARTRATE [Concomitant]

REACTIONS (2)
  - VOCAL CORD PARESIS [None]
  - DYSPHAGIA [None]
